FAERS Safety Report 7712946-7 (Version None)
Quarter: 2011Q3

REPORT INFORMATION
  Report Type: 
  Country: None (occurrence: None)
  Receive Date: 20110826
  Receipt Date: 20110818
  Transmission Date: 20111222
  Serious: Yes (Hospitalization)
  Sender: FDA-Public Use
  Company Number: PHHY2010CA47984

PATIENT
  Sex: Female

DRUGS (8)
  1. FOLIC ACID [Concomitant]
  2. TYLENOL-500 [Concomitant]
  3. TEMAZEPAM [Concomitant]
  4. DIAZEPAM [Concomitant]
  5. EXJADE [Suspect]
     Indication: MYELODYSPLASTIC SYNDROME
     Dosage: 1500 MG, QD
     Route: 048
  6. MELOXICAM [Concomitant]
  7. OXYCONTIN [Concomitant]
  8. FLOVENT [Concomitant]

REACTIONS (22)
  - PNEUMONIA [None]
  - BACTERIAL INFECTION [None]
  - ALOPECIA [None]
  - DARK CIRCLES UNDER EYES [None]
  - FATIGUE [None]
  - ACNE [None]
  - SCRATCH [None]
  - SLEEP DISORDER [None]
  - INFLUENZA [None]
  - NECK PAIN [None]
  - EYE DISORDER [None]
  - DRY MOUTH [None]
  - PRURITUS [None]
  - PAIN [None]
  - CONSTIPATION [None]
  - BACK PAIN [None]
  - TENDERNESS [None]
  - FEELING ABNORMAL [None]
  - ABDOMINAL PAIN [None]
  - DIARRHOEA [None]
  - SKIN DISORDER [None]
  - SKIN DISCOLOURATION [None]
